FAERS Safety Report 23936791 (Version 2)
Quarter: 2024Q2

REPORT INFORMATION
  Report Type: Spontaneous
  Country: US (occurrence: US)
  Receive Date: 20240604
  Receipt Date: 20240614
  Transmission Date: 20240716
  Serious: Yes (Hospitalization, Other)
  Sender: FDA-Public Use
  Company Number: US-GLAXOSMITHKLINE-US2024AMR067280

PATIENT
  Age: 28 Year
  Sex: Female
  Weight: 57 kg

DRUGS (24)
  1. LAMICTAL [Suspect]
     Active Substance: LAMOTRIGINE
     Indication: Product used for unknown indication
     Dosage: 25 MG, QD, FOR 2 WKS
     Route: 048
     Dates: start: 20231214, end: 20240319
  2. LAMICTAL [Suspect]
     Active Substance: LAMOTRIGINE
     Dosage: 2 DF, QD
     Dates: start: 20231214, end: 20240319
  3. GABAPENTIN [Concomitant]
     Active Substance: GABAPENTIN
     Indication: Product used for unknown indication
     Dosage: 300 MG, QD
  4. GABAPENTIN [Concomitant]
     Active Substance: GABAPENTIN
     Dosage: 100 MG, BID, 1-3 CAPSULE
     Route: 048
     Dates: start: 20240515
  5. ABILIFY [Concomitant]
     Active Substance: ARIPIPRAZOLE
     Indication: Bipolar disorder
     Dosage: 5 MG, QD, 1 TABLET
     Route: 048
     Dates: start: 20240501
  6. ABILIFY [Concomitant]
     Active Substance: ARIPIPRAZOLE
     Dosage: 5 MG, QD, 1 TABLET
     Route: 048
     Dates: end: 20030315
  7. ABILIFY [Concomitant]
     Active Substance: ARIPIPRAZOLE
     Dosage: 2 MG, QD, 1 TABLET BY ORAL ROUTE EVERY DAY
     Route: 048
     Dates: start: 20230215
  8. TRAZODONE HCL [Concomitant]
     Active Substance: TRAZODONE HYDROCHLORIDE
     Indication: Product used for unknown indication
     Dosage: 50 MG, QD, TAKE 1/2-1 TABLET
     Route: 048
     Dates: start: 20230329
  9. PREDNISONE [Concomitant]
     Active Substance: PREDNISONE
     Indication: Product used for unknown indication
     Dosage: 20 MG, QD (2 TABLET DAILY)
     Route: 048
  10. METHYLPREDNISOLONE [Concomitant]
     Active Substance: METHYLPREDNISOLONE
     Indication: Product used for unknown indication
     Dosage: UNK
  11. ACETAMINOPHEN [Concomitant]
     Active Substance: ACETAMINOPHEN
     Indication: Product used for unknown indication
     Dosage: UNK
  12. FAMOTIDINE [Concomitant]
     Active Substance: FAMOTIDINE
     Indication: Product used for unknown indication
     Dosage: 20 MG, BID
  13. CETIRIZINE HYDROCHLORIDE [Concomitant]
     Active Substance: CETIRIZINE HYDROCHLORIDE
     Indication: Product used for unknown indication
     Dosage: 10 MG, QD (AS NEEDED)
     Route: 048
  14. BANOPHEN [Concomitant]
     Active Substance: DIPHENHYDRAMINE HYDROCHLORIDE
     Indication: Product used for unknown indication
     Dosage: UNK
  15. CETIRIZINE [Concomitant]
     Active Substance: CETIRIZINE HYDROCHLORIDE
     Indication: Rash
     Dosage: 10 MG, QD, 1 TABLET
     Route: 048
  16. DIPHENHYDRAMINE [Concomitant]
     Active Substance: DIPHENHYDRAMINE
     Indication: Pruritus
     Dosage: 50 MG, QID, AS NEEDED
  17. ARIPIPRAZOLE [Concomitant]
     Active Substance: ARIPIPRAZOLE
     Indication: Product used for unknown indication
     Dosage: 1 DF, QD
     Route: 048
     Dates: start: 20240514
  18. AZELAIC ACID [Concomitant]
     Active Substance: AZELAIC ACID
     Indication: Product used for unknown indication
     Dosage: UNK, BID
     Dates: start: 20240331
  19. OLOPATADINE HYDROCHLORIDE [Concomitant]
     Active Substance: OLOPATADINE HYDROCHLORIDE
     Indication: Product used for unknown indication
     Dosage: 1 DF, BID
  20. EPINEPHRINE [Concomitant]
     Active Substance: EPINEPHRINE
     Indication: Anaphylactic shock
     Dosage: 0.3 ML (0.3 MG SOLUTION INJECTION AUTO-INJECTOR)
     Route: 042
     Dates: start: 20240102
  21. EPINEPHRINE [Concomitant]
     Active Substance: EPINEPHRINE
     Dosage: UNK
     Route: 030
  22. TRAZODONE [Concomitant]
     Active Substance: TRAZODONE HYDROCHLORIDE
     Indication: Product used for unknown indication
     Dosage: 50 MG, QD
     Dates: start: 20230429
  23. TRAZODONE [Concomitant]
     Active Substance: TRAZODONE HYDROCHLORIDE
     Dosage: UNK, QD, 1-1/2 TABLET
     Route: 048
     Dates: start: 20230315
  24. TRAZODONE [Concomitant]
     Active Substance: TRAZODONE HYDROCHLORIDE
     Dosage: 50 MG, QD
     Dates: start: 20220915

REACTIONS (39)
  - Toxic epidermal necrolysis [Unknown]
  - Stevens-Johnson syndrome [Recovering/Resolving]
  - Depression [Unknown]
  - Fatigue [Unknown]
  - Rash [Unknown]
  - Blood cholesterol increased [Unknown]
  - Blood bilirubin increased [Unknown]
  - Blood pressure increased [Unknown]
  - Cheilitis [Unknown]
  - Tachycardia [Unknown]
  - Illness [Unknown]
  - Rash macular [Unknown]
  - Condition aggravated [Unknown]
  - Vulvovaginal pain [Unknown]
  - Eyelid margin crusting [Unknown]
  - Vision blurred [Unknown]
  - Loss of personal independence in daily activities [Unknown]
  - Stress [Unknown]
  - Anxiety [Unknown]
  - Asthenia [Unknown]
  - Dry eye [Unknown]
  - Insomnia [Unknown]
  - Decreased appetite [Unknown]
  - Mood swings [Unknown]
  - Panic attack [Unknown]
  - Weight increased [Unknown]
  - Erythema [Unknown]
  - Swelling [Unknown]
  - Scab [Unknown]
  - Dysphagia [Unknown]
  - Blood pressure decreased [Unknown]
  - Eye swelling [Unknown]
  - Lip swelling [Unknown]
  - Lip blister [Unknown]
  - Pruritus [Unknown]
  - Urticaria [Unknown]
  - Labelled drug-food interaction issue [Unknown]
  - Hypersensitivity [Unknown]
  - Product dose omission issue [Unknown]

NARRATIVE: CASE EVENT DATE: 20240101
